FAERS Safety Report 14435787 (Version 1)
Quarter: 2018Q1

REPORT INFORMATION
  Report Type: Spontaneous
  Country: FR (occurrence: FR)
  Receive Date: 20180125
  Receipt Date: 20180125
  Transmission Date: 20180509
  Serious: Yes (Other)
  Sender: FDA-Public Use
  Company Number: FR-MERCK KGAA-2040773

PATIENT
  Age: 76 Year
  Sex: Male

DRUGS (1)
  1. NOVOTHYROX [Suspect]
     Active Substance: LEVOTHYROXINE SODIUM
     Indication: HYPOTHYROIDISM
     Dates: start: 201705

REACTIONS (19)
  - Myalgia [Recovering/Resolving]
  - Constipation [Recovering/Resolving]
  - Somnolence [Recovering/Resolving]
  - Vertigo [Recovering/Resolving]
  - Thyroxine free increased [Recovering/Resolving]
  - Overweight [Recovering/Resolving]
  - Headache [Recovering/Resolving]
  - Gait inability [Recovering/Resolving]
  - Gait disturbance [Recovering/Resolving]
  - Heart rate irregular [Recovering/Resolving]
  - Fatigue [Recovering/Resolving]
  - Fear of falling [Recovering/Resolving]
  - Limb injury [Recovering/Resolving]
  - Balance disorder [Recovering/Resolving]
  - Limb discomfort [Recovering/Resolving]
  - Fall [Recovering/Resolving]
  - Loss of personal independence in daily activities [Recovering/Resolving]
  - Anxiety [Recovering/Resolving]
  - Asthenia [Recovering/Resolving]

NARRATIVE: CASE EVENT DATE: 201705
